FAERS Safety Report 9656118 (Version 1)
Quarter: 2013Q4

REPORT INFORMATION
  Report Type: Spontaneous
  Country: US (occurrence: None)
  Receive Date: 20131029
  Receipt Date: 20131029
  Transmission Date: 20140711
  Serious: Yes (Hospitalization, Disabling, Other)
  Sender: FDA-Public Use
  Company Number: None

PATIENT
  Age: 71 Year
  Sex: Male
  Weight: 99.79 kg

DRUGS (10)
  1. AMIODARONE [Suspect]
     Indication: ATRIAL FIBRILLATION
     Dosage: 200 MG?2 DAILY, 1 DAILY?MEGA DOSE AT FIRST DOWN TO 1 DAILY ?BY MOUTH
     Route: 048
     Dates: start: 201108
  2. RENVELA [Concomitant]
  3. DIVALPROEX [Concomitant]
  4. VYTORIN [Concomitant]
  5. CARVOIDILOL [Concomitant]
  6. XANOXIS [Concomitant]
  7. ENLABLEX [Concomitant]
  8. AMIODARONE [Concomitant]
  9. CLOPIDOGREL [Concomitant]
  10. VITAL D [Concomitant]

REACTIONS (3)
  - Fall [None]
  - Muscle atrophy [None]
  - Muscle disorder [None]
